FAERS Safety Report 4466095-4 (Version None)
Quarter: 2004Q3

REPORT INFORMATION
  Report Type: 
  Country: None (occurrence: None)
  Receive Date: 20040929
  Receipt Date: 20040929
  Transmission Date: 20050211
  Serious: Yes (Other)
  Sender: FDA-Public Use
  Company Number: None

PATIENT
  Sex: Male
  Weight: 158.759 kg

DRUGS (3)
  1. PHENYTEK [Suspect]
     Indication: CONVULSION
     Dosage: 300 MG 1 PO BID
     Route: 048
  2. KEPPRA [Concomitant]
  3. PHENOBARBITAL TAB [Concomitant]

REACTIONS (3)
  - CONVULSION [None]
  - DRUG LEVEL ABOVE THERAPEUTIC [None]
  - PHARMACEUTICAL PRODUCT COMPLAINT [None]
